FAERS Safety Report 13601679 (Version 1)
Quarter: 2017Q2

REPORT INFORMATION
  Report Type: Spontaneous
  Country: US (occurrence: US)
  Receive Date: 20170601
  Receipt Date: 20170601
  Transmission Date: 20170830
  Serious: No
  Sender: FDA-Public Use
  Company Number: US-BAUSCH-BL-2016-010709

PATIENT
  Age: 70 Year
  Sex: Female
  Weight: 53.57 kg

DRUGS (2)
  1. ELIDEL [Suspect]
     Active Substance: PIMECROLIMUS
     Indication: ACNE
     Route: 061
     Dates: start: 20160428, end: 20160502
  2. ELIDEL [Suspect]
     Active Substance: PIMECROLIMUS
     Indication: PRURITUS

REACTIONS (2)
  - No adverse event [Unknown]
  - Drug ineffective [Unknown]
